FAERS Safety Report 24765787 (Version 6)
Quarter: 2025Q1

REPORT INFORMATION
  Report Type: Report from Study
  Country: ES (occurrence: ES)
  Receive Date: 20241223
  Receipt Date: 20250216
  Transmission Date: 20250409
  Serious: Yes (Death, Hospitalization, Other)
  Sender: ABBVIE
  Company Number: ES-ABBVIE-5973087

PATIENT
  Age: 51 Year
  Sex: Male

DRUGS (3)
  1. CARBIDOPA\LEVODOPA [Suspect]
     Active Substance: CARBIDOPA\LEVODOPA
     Indication: Parkinson^s disease
     Route: 058
     Dates: start: 20240925, end: 202410
  2. CARBIDOPA\LEVODOPA [Suspect]
     Active Substance: CARBIDOPA\LEVODOPA
     Route: 058
     Dates: start: 202410, end: 202412
  3. CARBIDOPA\LEVODOPA [Suspect]
     Active Substance: CARBIDOPA\LEVODOPA
     Route: 058
     Dates: start: 202412

REACTIONS (16)
  - Sepsis [Fatal]
  - Poor quality sleep [Unknown]
  - Musculoskeletal stiffness [Unknown]
  - Condition aggravated [Unknown]
  - Aspiration [Unknown]
  - Psychotic symptom [Not Recovered/Not Resolved]
  - Staphylococcal infection [Fatal]
  - On and off phenomenon [Not Recovered/Not Resolved]
  - Pneumonia [Fatal]
  - Puncture site haematoma [Unknown]
  - Puncture site induration [Unknown]
  - Tracheostomy [Unknown]
  - Discouragement [Unknown]
  - Hallucination [Unknown]
  - Total lung capacity decreased [Unknown]
  - Choking [Unknown]

NARRATIVE: CASE EVENT DATE: 20240101
